FAERS Safety Report 20562080 (Version 1)
Quarter: 2022Q1

REPORT INFORMATION
  Report Type: Spontaneous
  Country: US (occurrence: US)
  Receive Date: 20220307
  Receipt Date: 20220307
  Transmission Date: 20220423
  Serious: Yes (Other)
  Sender: FDA-Public Use
  Company Number: US-SA-SAC20220304000156

PATIENT
  Age: 56 Year
  Sex: Male

DRUGS (1)
  1. ZANTAC [Suspect]
     Active Substance: RANITIDINE HYDROCHLORIDE
     Indication: Gastrooesophageal reflux disease
     Dosage: 75 MG, QD
     Dates: start: 200701, end: 201301

REACTIONS (3)
  - Oesophageal carcinoma [Unknown]
  - Lung carcinoma cell type unspecified stage I [Unknown]
  - Haematological malignancy [Not Recovered/Not Resolved]

NARRATIVE: CASE EVENT DATE: 20100510
